FAERS Safety Report 6244045-8 (Version None)
Quarter: 2009Q2

REPORT INFORMATION
  Report Type: 
  Country: None (occurrence: None)
  Receive Date: 20090625
  Receipt Date: 20070503
  Transmission Date: 20091009
  Serious: Yes (Hospitalization, Other)
  Sender: FDA-Public Use
  Company Number: US-ASTRAZENECA-2006UW10798

PATIENT
  Age: 19971 Day
  Sex: Female
  Weight: 96.6 kg

DRUGS (12)
  1. SEROQUEL [Suspect]
     Indication: DEPRESSION
     Dosage: 25 - 100 MG, FLUCTUATING
     Route: 048
     Dates: start: 20020722, end: 20040324
  2. SEROQUEL [Suspect]
     Indication: SCHIZOPHRENIA
     Dosage: 25 - 100 MG, FLUCTUATING
     Route: 048
     Dates: start: 20020722, end: 20040324
  3. ZYPREXA [Suspect]
     Indication: SCHIZOPHRENIA, PARANOID TYPE
     Dosage: 5 - 10 MG, FLUCTUATING
     Route: 048
     Dates: start: 19970728
  4. RISPERDAL [Suspect]
     Indication: SCHIZOPHRENIA, PARANOID TYPE
     Dosage: 2 - 3 MG, FLUCTUATING
     Route: 048
     Dates: start: 20000202, end: 20041109
  5. ABILIFY [Concomitant]
  6. HALDOL DEC [Concomitant]
     Route: 030
     Dates: start: 19960207
  7. THORAZINE [Concomitant]
  8. VISTARIL [Concomitant]
     Dosage: 50 - 100 MG, FLUCTUATING
     Route: 048
     Dates: start: 19960701
  9. EFFEXOR XR [Concomitant]
     Dosage: 75 - 150 MG, FLUCTUATING
     Route: 048
     Dates: start: 20000731
  10. AMANTADINE HCL [Concomitant]
     Indication: APPETITE DISORDER
     Route: 048
     Dates: start: 19990225, end: 20040324
  11. HUMULIN 70/30 [Concomitant]
     Indication: DIABETES MELLITUS
     Dosage: 6 - 20 UNITS
     Route: 058
     Dates: start: 20001222
  12. LIPITOR [Concomitant]
     Indication: BLOOD CHOLESTEROL INCREASED

REACTIONS (6)
  - DIABETES MELLITUS [None]
  - DIABETIC NEUROPATHY [None]
  - INSULIN-REQUIRING TYPE 2 DIABETES MELLITUS [None]
  - NEUROPATHY PERIPHERAL [None]
  - TYPE 1 DIABETES MELLITUS [None]
  - WEIGHT INCREASED [None]
